FAERS Safety Report 22626251 (Version 1)
Quarter: 2023Q2

REPORT INFORMATION
  Report Type: Spontaneous
  Country: US (occurrence: US)
  Receive Date: 20230621
  Receipt Date: 20230621
  Transmission Date: 20230722
  Serious: No
  Sender: FDA-Public Use
  Company Number: US-ABBVIE-5297649

PATIENT
  Sex: Male

DRUGS (1)
  1. IMBRUVICA [Suspect]
     Active Substance: IBRUTINIB
     Indication: Product used for unknown indication
     Dosage: TAKE 3 CAPSULES BY MOUTH ONCE DAILY?FORM STRENGTH: 140 MILLIGRAM
     Route: 048

REACTIONS (2)
  - Hypertension [Unknown]
  - Atrial fibrillation [Unknown]
